FAERS Safety Report 10978348 (Version 1)
Quarter: 2015Q2

REPORT INFORMATION
  Report Type: Spontaneous
  Country: BE (occurrence: BE)
  Receive Date: 20150402
  Receipt Date: 20150402
  Transmission Date: 20150821
  Serious: Yes (Other)
  Sender: FDA-Public Use
  Company Number: BE-PFIZER INC-2015109993

PATIENT
  Age: 73 Year
  Sex: Male
  Weight: 81 kg

DRUGS (4)
  1. ACETYLCYSTEIN [Concomitant]
     Active Substance: ACETYLCYSTEINE
     Dosage: UNK
     Dates: start: 1985
  2. METATOP [Suspect]
     Active Substance: LORMETAZEPAM
     Dosage: UNK
  3. XANAX [Suspect]
     Active Substance: ALPRAZOLAM
     Dosage: UNK
     Route: 048
  4. VALACICLOVIR [Suspect]
     Active Substance: VALACYCLOVIR HYDROCHLORIDE
     Indication: ORAL HERPES
     Dosage: 500 MG, 3X/DAY
     Route: 048
     Dates: start: 20150312, end: 20150313

REACTIONS (2)
  - Obstructive uropathy [Recovering/Resolving]
  - Anuria [Recovering/Resolving]

NARRATIVE: CASE EVENT DATE: 20150312
